FAERS Safety Report 5249221-9 (Version None)
Quarter: 2007Q1

REPORT INFORMATION
  Report Type: 
  Country: None (occurrence: None)
  Receive Date: 20070228
  Receipt Date: 20070222
  Transmission Date: 20070707
  Serious: Yes (Death)
  Sender: FDA-Public Use
  Company Number: DE-JNJFOC-20070205489

PATIENT
  Sex: Male

DRUGS (1)
  1. ORTHOCLONE OKT3 [Suspect]
     Indication: TRANSPLANT REJECTION
     Route: 065

REACTIONS (1)
  - HEART TRANSPLANT REJECTION [None]
